FAERS Safety Report 5892914-0 (Version None)
Quarter: 2008Q3

REPORT INFORMATION
  Report Type: 
  Country: None (occurrence: None)
  Receive Date: 20080923
  Receipt Date: 20080912
  Transmission Date: 20090109
  Serious: Yes (Life-Threatening, Other)
  Sender: FDA-Public Use
  Company Number: GB-AMGEN-US251754

PATIENT
  Sex: Female

DRUGS (6)
  1. ENBREL [Suspect]
     Indication: RHEUMATOID ARTHRITIS
     Route: 058
     Dates: start: 20060501, end: 20070801
  2. SIMVASTATIN [Concomitant]
     Route: 065
  3. METHOTREXATE [Concomitant]
     Dosage: UNKNOWN
     Route: 058
  4. NAPROXEN [Concomitant]
     Dosage: 500MG ONCE A DAY, AS NECESSARY
     Route: 065
  5. FOLIC ACID [Concomitant]
     Route: 065
  6. LANSOPRAZOLE [Concomitant]
     Route: 065

REACTIONS (2)
  - NEUROENDOCRINE CARCINOMA OF THE SKIN [None]
  - SURGERY [None]
